FAERS Safety Report 9398877 (Version 1)
Quarter: 2013Q3

REPORT INFORMATION
  Report Type: Spontaneous
  Country: US (occurrence: US)
  Receive Date: 20130712
  Receipt Date: 20130712
  Transmission Date: 20140515
  Serious: No
  Sender: FDA-Public Use
  Company Number: US-UPSHER-SMITH LABORATORIES, INC.-13002211

PATIENT
  Sex: Female

DRUGS (18)
  1. JANTOVEN [Suspect]
     Indication: ATRIAL FIBRILLATION
     Dosage: 3 MG, QW
     Route: 048
  2. JANTOVEN [Suspect]
     Indication: ATRIAL FIBRILLATION
     Dosage: 4 MG, 6 D/WK
     Route: 048
  3. COZAAR [Concomitant]
     Dosage: UNK
  4. DILAUDID [Concomitant]
     Indication: PAIN
     Dosage: UNK
  5. DILTIAZEM [Concomitant]
     Dosage: UNK
  6. FENTANYL [Concomitant]
     Dosage: UNK
  7. FEXOFENADINE [Concomitant]
     Dosage: UNK
  8. FLONASE [Concomitant]
     Dosage: UNK
  9. LIDEX [Concomitant]
     Dosage: UNK
  10. HYPOTEARS                          /00543401/ [Concomitant]
     Dosage: UNK
  11. CENTRUM SILVER                     /01292501/ [Concomitant]
     Dosage: UNK
  12. OMEPRAZOLE [Concomitant]
     Indication: GASTROOESOPHAGEAL REFLUX DISEASE
     Dosage: UNK
  13. GLYCOLAX [Concomitant]
     Indication: CONSTIPATION
     Dosage: UNK
  14. PROVIGIL [Concomitant]
     Dosage: UNK
  15. SYNTHROID [Concomitant]
     Dosage: UNK
  16. TORSEMIDE [Concomitant]
     Dosage: UNK
  17. VIVELLE DOT [Concomitant]
     Dosage: UNK
  18. VOLTAREN                           /00372301/ [Concomitant]
     Dosage: UNK

REACTIONS (3)
  - Feeling cold [Not Recovered/Not Resolved]
  - Decreased appetite [Not Recovered/Not Resolved]
  - Night sweats [Recovered/Resolved]
